FAERS Safety Report 7204741-2 (Version None)
Quarter: 2010Q4

REPORT INFORMATION
  Report Type: 
  Country: None (occurrence: None)
  Receive Date: 20101230
  Receipt Date: 20101223
  Transmission Date: 20110411
  Serious: Yes (Other)
  Sender: FDA-Public Use
  Company Number: JP-WATSON-2010-16578

PATIENT
  Age: 47 Year
  Sex: Female
  Weight: 74 kg

DRUGS (1)
  1. PREDNISOLONE ACETATE [Suspect]
     Indication: SYSTEMIC LUPUS ERYTHEMATOSUS
     Dosage: UNK

REACTIONS (1)
  - FIBROUS HISTIOCYTOMA [None]
